FAERS Safety Report 6663647-8 (Version None)
Quarter: 2010Q1

REPORT INFORMATION
  Report Type: 
  Country: None (occurrence: None)
  Receive Date: 20100331
  Receipt Date: 20100331
  Transmission Date: 20100710
  Serious: Yes (Hospitalization, Other)
  Sender: FDA-Public Use
  Company Number: None

PATIENT
  Sex: Female
  Weight: 82 kg

DRUGS (1)
  1. LINEZOLID [Suspect]
     Indication: ENTEROCOCCAL INFECTION
     Dosage: 600MG TWICE A DAY INJ
     Dates: start: 20090926, end: 20090927

REACTIONS (2)
  - CONDITION AGGRAVATED [None]
  - PLATELET COUNT DECREASED [None]
